FAERS Safety Report 5737113-8 (Version None)
Quarter: 2008Q2

REPORT INFORMATION
  Report Type: 
  Country: None (occurrence: None)
  Receive Date: 20080514
  Receipt Date: 20080430
  Transmission Date: 20081010
  Serious: Yes (Hospitalization)
  Sender: FDA-Public Use
  Company Number: GB-SOLVAY-00208001875

PATIENT
  Age: 72 Year
  Sex: Female

DRUGS (1)
  1. PERINDOPRIL ERBUMINE [Suspect]
     Indication: DRUG USE FOR UNKNOWN INDICATION
     Dosage: DAILY DOSE: 4 MILLIGRAM(S)
     Route: 048

REACTIONS (7)
  - BODY TEMPERATURE INCREASED [None]
  - CARDIAC DISORDER [None]
  - COUGH [None]
  - INADEQUATE DIET [None]
  - INSOMNIA [None]
  - NERVOUSNESS [None]
  - OEDEMA PERIPHERAL [None]
